FAERS Safety Report 5645540-2 (Version None)
Quarter: 2008Q1

REPORT INFORMATION
  Report Type: 
  Country: None (occurrence: None)
  Receive Date: 20080229
  Receipt Date: 20080220
  Transmission Date: 20080703
  Serious: Yes (Hospitalization)
  Sender: FDA-Public Use
  Company Number: US-KINGPHARMUSA00001-K200800228

PATIENT

DRUGS (9)
  1. ALTACE [Interacting]
     Dosage: 5 MG QD
     Route: 048
     Dates: end: 20071223
  2. ALTACE [Interacting]
     Dosage: 1.25 MG QD
     Route: 048
     Dates: start: 20071223
  3. LASILIX                            /00032601/ [Interacting]
     Dosage: 40 MG, QD
     Route: 048
     Dates: end: 20071223
  4. LASILIX                            /00032601/ [Interacting]
     Dosage: 20 MG, QD
     Route: 048
     Dates: start: 20071223
  5. ALDACTONE [Interacting]
     Dosage: 25 MG, QD
     Route: 048
     Dates: end: 20071223
  6. CARDENSIEL [Suspect]
     Dosage: 1.25 MG, QD
     Route: 048
  7. PREVISCAN     /00789001/ [Concomitant]
     Dosage: UNK, UNK
     Route: 048
  8. ELISOR [Concomitant]
     Route: 048
  9. PLAVIX [Concomitant]
     Route: 048

REACTIONS (2)
  - DRUG INTERACTION [None]
  - HYPOTENSION [None]
